FAERS Safety Report 13956475 (Version 3)
Quarter: 2017Q3

REPORT INFORMATION
  Report Type: Spontaneous
  Country: JP (occurrence: JP)
  Receive Date: 20170911
  Receipt Date: 20170925
  Transmission Date: 20171128
  Serious: Yes (Death, Other)
  Sender: FDA-Public Use
  Company Number: JP-PFIZER INC-2017386974

PATIENT
  Age: 91 Year
  Sex: Male
  Weight: 51 kg

DRUGS (12)
  1. GANCICLOVIR. [Concomitant]
     Active Substance: GANCICLOVIR
     Dosage: 100 MG, DAILY
  2. MESALAZINE [Suspect]
     Active Substance: MESALAMINE
     Dosage: 4000 MG, DAILY
  3. IMMUNOGLOBULIN HUMAN NORMAL [Concomitant]
     Active Substance: HUMAN IMMUNOGLOBULIN G
     Dosage: 5 MG, DAILY
  4. PREDNISOLONE SODIUM SUCCINATE [Suspect]
     Active Substance: PREDNISOLONE SODIUM SUCCINATE
     Dosage: 20 MG, UNK
     Route: 041
  5. FLOMOXEF SODIUM [Concomitant]
     Active Substance: FLOMOXEF SODIUM
     Dosage: 2 G, DAILY
  6. URSODEOXYCHOLIC ACID [Concomitant]
     Active Substance: URSODIOL
     Dosage: 600 MG, DAILY
  7. MESALAZINE [Suspect]
     Active Substance: MESALAMINE
     Dosage: 2250 MG, DAILY
  8. HYDROCORTISONE SODIUM SUCCINATE [Concomitant]
     Active Substance: HYDROCORTISONE SODIUM SUCCINATE
     Dosage: UNK
     Route: 041
  9. SULFASALAZINE. [Suspect]
     Active Substance: SULFASALAZINE
     Indication: COLITIS ULCERATIVE
     Dosage: UNK
  10. PREDNISOLONE SODIUM SUCCINATE [Suspect]
     Active Substance: PREDNISOLONE SODIUM SUCCINATE
     Indication: COLITIS ULCERATIVE
     Dosage: 50 MG, UNK
     Route: 041
  11. PREDNISOLONE SODIUM PHOSPHATE. [Concomitant]
     Active Substance: PREDNISOLONE SODIUM PHOSPHATE
     Dosage: 20 MG, DAILY
     Route: 054
  12. PREDNISOLONE SODIUM SUCCINATE [Suspect]
     Active Substance: PREDNISOLONE SODIUM SUCCINATE
     Dosage: 40 MG, UNK

REACTIONS (2)
  - Post procedural infection [Fatal]
  - Acute kidney injury [Fatal]
